FAERS Safety Report 20610927 (Version 1)
Quarter: 2022Q1

REPORT INFORMATION
  Report Type: Spontaneous
  Country: US (occurrence: US)
  Receive Date: 20220318
  Receipt Date: 20220318
  Transmission Date: 20220423
  Serious: Yes (Other)
  Sender: FDA-Public Use
  Company Number: US-GLAXOSMITHKLINE-US2022AMR048380

PATIENT
  Sex: Female

DRUGS (1)
  1. ZEJULA [Suspect]
     Active Substance: NIRAPARIB
     Indication: Ovarian cancer
     Dosage: UNK,ZEJULA 200 MG TUESDAY, THURSDAY, SATURDAY, 300 MG MONDAY, WEDNESDAY, FRIDAY
     Dates: start: 20201107, end: 20220301

REACTIONS (2)
  - Malignant neoplasm progression [Unknown]
  - Off label use [Unknown]
